FAERS Safety Report 5012919-1 (Version None)
Quarter: 2006Q2

REPORT INFORMATION
  Report Type: 
  Country: None (occurrence: None)
  Receive Date: 20060525
  Receipt Date: 20060525
  Transmission Date: 20061013
  Serious: Yes (Other)
  Sender: FDA-Public Use
  Company Number: None

PATIENT
  Sex: Male

DRUGS (2)
  1. LEXAPRO [Suspect]
     Indication: DEPRESSION
     Dosage: ONE DAILY PO
     Route: 048
     Dates: start: 20060305, end: 20060405
  2. LEXAPRO [Suspect]
     Indication: DEPRESSION
     Dosage: ONE DAILY PO
     Route: 048
     Dates: start: 20060405, end: 20060524

REACTIONS (2)
  - COMPUTERISED TOMOGRAM ABNORMAL [None]
  - GRAND MAL CONVULSION [None]
